FAERS Safety Report 17664018 (Version 1)
Quarter: 2020Q2

REPORT INFORMATION
  Report Type: Spontaneous
  Country: CN (occurrence: CN)
  Receive Date: 20200414
  Receipt Date: 20200414
  Transmission Date: 20200713
  Serious: Yes (Death, Hospitalization)
  Sender: FDA-Public Use
  Company Number: CN-ROCHE-2576668

PATIENT
  Age: 56 Year
  Sex: Female

DRUGS (8)
  1. APATINIB [Concomitant]
     Active Substance: APATINIB
     Indication: MALIGNANT MELANOMA
     Route: 065
     Dates: start: 20200103, end: 202002
  2. ZELBORAF [Suspect]
     Active Substance: VEMURAFENIB
     Route: 065
     Dates: start: 20191031, end: 20191230
  3. CISPLATIN. [Concomitant]
     Active Substance: CISPLATIN
     Route: 065
     Dates: start: 20200103, end: 202002
  4. ZELBORAF [Suspect]
     Active Substance: VEMURAFENIB
     Indication: MALIGNANT MELANOMA
     Route: 065
     Dates: start: 20190901, end: 20191025
  5. CISPLATIN. [Concomitant]
     Active Substance: CISPLATIN
     Indication: MALIGNANT MELANOMA
     Route: 065
     Dates: start: 20191031, end: 20191230
  6. TEMOZOLOMIDE. [Concomitant]
     Active Substance: TEMOZOLOMIDE
     Indication: MALIGNANT MELANOMA
     Route: 065
     Dates: start: 20200103, end: 202002
  7. COBIMETINIB. [Concomitant]
     Active Substance: COBIMETINIB
     Indication: MALIGNANT MELANOMA
     Route: 065
     Dates: start: 20191031, end: 20191230
  8. TORIPALIMAB. [Concomitant]
     Active Substance: TORIPALIMAB
     Route: 065
     Dates: start: 20191108, end: 20191220

REACTIONS (4)
  - Chest discomfort [Unknown]
  - Tachypnoea [Recovering/Resolving]
  - Abdominal distension [Unknown]
  - Death [Fatal]

NARRATIVE: CASE EVENT DATE: 202002
